FAERS Safety Report 5269222-4 (Version None)
Quarter: 2007Q1

REPORT INFORMATION
  Report Type: 
  Country: None (occurrence: None)
  Receive Date: 20070319
  Receipt Date: 20070307
  Transmission Date: 20070707
  Serious: Yes (Other)
  Sender: FDA-Public Use
  Company Number: GR-PFIZER INC-2007018059

PATIENT
  Age: 39 Year
  Sex: Female

DRUGS (2)
  1. VIBRAMYCIN (TABLETS) [Suspect]
     Indication: CERVICITIS
     Route: 048
     Dates: start: 20070306, end: 20070307
  2. CLINDAMYCIN HCL [Concomitant]
     Route: 067

REACTIONS (3)
  - ERYTHEMA [None]
  - FACE OEDEMA [None]
  - PRURITUS [None]
